FAERS Safety Report 13523559 (Version 3)
Quarter: 2017Q4

REPORT INFORMATION
  Report Type: Spontaneous
  Country: US (occurrence: US)
  Receive Date: 20170508
  Receipt Date: 20171003
  Transmission Date: 20180320
  Serious: Yes (Hospitalization)
  Sender: FDA-Public Use
  Company Number: US-VIFOR (INTERNATIONAL) INC.-VIT-2017-01997

PATIENT
  Age: 86 Year
  Sex: Female

DRUGS (19)
  1. HYDROXYCHLOROQUINE SULFATE. [Concomitant]
     Active Substance: HYDROXYCHLOROQUINE SULFATE
  2. ERGOCALCIFEROL. [Concomitant]
     Active Substance: ERGOCALCIFEROL
  3. VOLTAREN [Concomitant]
     Active Substance: DICLOFENAC SODIUM
  4. DIGOXIN. [Concomitant]
     Active Substance: DIGOXIN
  5. LEVOTHYROXINE SODIUM. [Concomitant]
     Active Substance: LEVOTHYROXINE SODIUM
  6. VALSARTAN. [Concomitant]
     Active Substance: VALSARTAN
  7. NOVOLOG [Concomitant]
     Active Substance: INSULIN ASPART
  8. ERGOCALCIFEROL. [Concomitant]
     Active Substance: ERGOCALCIFEROL
  9. KIONEX [Concomitant]
     Active Substance: SODIUM POLYSTYRENE SULFONATE
  10. LANTUS [Concomitant]
     Active Substance: INSULIN GLARGINE
  11. SYNTHROID [Concomitant]
     Active Substance: LEVOTHYROXINE SODIUM
  12. VELTASSA [Suspect]
     Active Substance: PATIROMER
     Indication: HYPERKALAEMIA
     Route: 048
     Dates: start: 20161228
  13. PENFILL [Concomitant]
  14. TRICOR [Concomitant]
     Active Substance: FENOFIBRATE
  15. VELTASSA [Suspect]
     Active Substance: PATIROMER
     Route: 048
     Dates: start: 20161025
  16. PREDNISONE. [Concomitant]
     Active Substance: PREDNISONE
  17. LOVONOX [Concomitant]
  18. FENOFIBRATE. [Concomitant]
     Active Substance: FENOFIBRATE
  19. FOLIC ACID. [Concomitant]
     Active Substance: FOLIC ACID

REACTIONS (4)
  - Head injury [Unknown]
  - Rehabilitation therapy [Unknown]
  - Asthenia [Unknown]
  - Inappropriate schedule of drug administration [Recovered/Resolved]

NARRATIVE: CASE EVENT DATE: 201709
